FAERS Safety Report 14995132 (Version 1)
Quarter: 2018Q2

REPORT INFORMATION
  Report Type: Spontaneous
  Country: CN (occurrence: CN)
  Receive Date: 20180611
  Receipt Date: 20180611
  Transmission Date: 20180711
  Serious: Yes (Other)
  Sender: FDA-Public Use
  Company Number: CN-MYLANLABS-2018M1041282

PATIENT
  Age: 79 Year
  Sex: Female
  Weight: 48 kg

DRUGS (2)
  1. CALCITONIN SALMON. [Suspect]
     Active Substance: CALCITONIN SALMON
     Indication: OSTEOPOROSIS
     Dosage: 50 IU, QD
     Route: 030
     Dates: start: 20180407, end: 20180412
  2. POTASSIUM CHLORIDE. [Concomitant]
     Active Substance: POTASSIUM CHLORIDE
     Indication: PRODUCT USED FOR UNKNOWN INDICATION
     Dosage: UNK
     Dates: start: 20180409, end: 20180411

REACTIONS (2)
  - Tremor [Recovered/Resolved]
  - Quadriplegia [Recovered/Resolved]

NARRATIVE: CASE EVENT DATE: 20180411
